FAERS Safety Report 17707240 (Version 2)
Quarter: 2020Q2

REPORT INFORMATION
  Report Type: Spontaneous
  Country: US (occurrence: US)
  Receive Date: 20200424
  Receipt Date: 20200521
  Transmission Date: 20200714
  Serious: No
  Sender: FDA-Public Use
  Company Number: US-BAUSCH-BL-2020-011421

PATIENT
  Sex: Male

DRUGS (3)
  1. LOTEMAX [Suspect]
     Active Substance: LOTEPREDNOL ETABONATE
     Indication: PRODUCT USE IN UNAPPROVED INDICATION
  2. LOTEMAX [Suspect]
     Active Substance: LOTEPREDNOL ETABONATE
     Indication: OPHTHALMIC HERPES ZOSTER
     Dosage: 1 DROP IN THE RIGHT EYE ON MONDAY, WEDNESDAY AND SATURDAY
     Route: 047
     Dates: start: 2013
  3. VALTREX [Concomitant]
     Active Substance: VALACYCLOVIR HYDROCHLORIDE
     Indication: PRODUCT USED FOR UNKNOWN INDICATION
     Dates: start: 2013

REACTIONS (9)
  - Product use in unapproved indication [Unknown]
  - Symptom recurrence [Unknown]
  - Contraindicated product administered [Unknown]
  - Eye irritation [Unknown]
  - Product residue present [Unknown]
  - Contraindicated product prescribed [Unknown]
  - Eye inflammation [Unknown]
  - Product quality issue [Unknown]
  - Product physical consistency issue [Unknown]

NARRATIVE: CASE EVENT DATE: 2013
